FAERS Safety Report 11534065 (Version 5)
Quarter: 2018Q3

REPORT INFORMATION
  Report Type: Spontaneous
  Country: US (occurrence: US)
  Receive Date: 20150922
  Receipt Date: 20180912
  Transmission Date: 20181010
  Serious: No
  Sender: FDA-Public Use
  Company Number: US-ASTRAZENECA-2015SE89685

PATIENT
  Sex: Female
  Weight: 74.8 kg

DRUGS (1)
  1. TUDORZA PRESSAIR [Suspect]
     Active Substance: ACLIDINIUM BROMIDE
     Indication: CHRONIC OBSTRUCTIVE PULMONARY DISEASE
     Route: 055

REACTIONS (6)
  - Visual acuity reduced [Unknown]
  - Bone disorder [Unknown]
  - Inspiratory capacity decreased [Unknown]
  - Intentional product use issue [Unknown]
  - Drug dose omission [Unknown]
  - Device malfunction [Unknown]
